FAERS Safety Report 8844325 (Version 1)
Quarter: 2012Q4

REPORT INFORMATION
  Report Type: 
  Country: BE (occurrence: BE)
  Receive Date: 20121017
  Receipt Date: 20121017
  Transmission Date: 20130627
  Serious: Yes (Death, Hospitalization)
  Sender: FDA-Public Use
  Company Number: BE-009507513-1210BEL005040

PATIENT
  Age: 57 Year
  Sex: Female
  Weight: 60 kg

DRUGS (4)
  1. COSOPT [Suspect]
     Dosage: 1x
     Route: 047
     Dates: start: 20120625, end: 20120625
  2. SOTALEX [Suspect]
     Dosage: 1/2 tablet daily
     Route: 048
     Dates: start: 20120727, end: 20120810
  3. DILTIAZEM [Suspect]
     Dosage: 1x
  4. ASAFLOW [Suspect]
     Dosage: UNK, qd
     Route: 048
     Dates: start: 20120525, end: 20120810

REACTIONS (2)
  - Coma [Fatal]
  - Tachycardia [Unknown]
